FAERS Safety Report 11743957 (Version 1)
Quarter: 2015Q4

REPORT INFORMATION
  Report Type: Spontaneous
  Country: US (occurrence: None)
  Receive Date: 20151116
  Receipt Date: 20151116
  Transmission Date: 20160304
  Serious: Yes (Hospitalization, Other)
  Sender: FDA-Public Use
  Company Number: US-MDT-ADR-2015-02158

PATIENT
  Age: 60 Year
  Sex: Female

DRUGS (1)
  1. BACLOFEN INTRATHECAL [Suspect]
     Active Substance: BACLOFEN
     Indication: MUSCLE SPASTICITY

REACTIONS (8)
  - Drug hypersensitivity [None]
  - Pruritus [None]
  - Migraine [None]
  - Nausea [None]
  - Implant site extravasation [None]
  - Pain [None]
  - Muscle spasticity [None]
  - Pleuritic pain [None]
